FAERS Safety Report 12495001 (Version 1)
Quarter: 2016Q2

REPORT INFORMATION
  Report Type: Spontaneous
  Country: US (occurrence: None)
  Receive Date: 20160623
  Receipt Date: 20160623
  Transmission Date: 20160815
  Serious: Yes (Life-Threatening, Hospitalization, Other)
  Sender: FDA-Public Use
  Company Number: None

PATIENT
  Age: 31 Year
  Sex: Female
  Weight: 80.29 kg

DRUGS (14)
  1. LOSARTAN. [Concomitant]
     Active Substance: LOSARTAN
  2. BUPROPION. [Concomitant]
     Active Substance: BUPROPION
  3. MELATONIN [Concomitant]
     Active Substance: MELATONIN
  4. SUPER B COMPLEX [Concomitant]
     Active Substance: CYANOCOBALAMIN\DEXPANTHENOL\NIACINAMIDE\PYRIDOXINE HYDROCHLORIDE\RIBOFLAVIN 5^-PHOSPHATE SODIUM\THIAMINE HYDROCHLORIDE\VITAMIN B COMPLEX
  5. GABAPENTIN. [Concomitant]
     Active Substance: GABAPENTIN
  6. LYSINE [Concomitant]
     Active Substance: LYSINE
  7. TYSABRI [Suspect]
     Active Substance: NATALIZUMAB
     Indication: MULTIPLE SCLEROSIS
  8. CRANBERRY. [Concomitant]
     Active Substance: CRANBERRY
  9. AMLODIPINE [Concomitant]
     Active Substance: AMLODIPINE BESYLATE
  10. ATENOLOL. [Concomitant]
     Active Substance: ATENOLOL
  11. TOPIRAMATE. [Concomitant]
     Active Substance: TOPIRAMATE
  12. BACLOFEN. [Concomitant]
     Active Substance: BACLOFEN
  13. MULTIVITAMIN [Concomitant]
     Active Substance: VITAMINS
  14. BIOTIN [Concomitant]
     Active Substance: BIOTIN

REACTIONS (14)
  - Chest pain [None]
  - Urticaria [None]
  - Dizziness [None]
  - Muscle spasms [None]
  - Hypertension [None]
  - Oxygen saturation decreased [None]
  - Gastrointestinal pain [None]
  - Flushing [None]
  - Erythema [None]
  - Swelling face [None]
  - Uterine spasm [None]
  - Nausea [None]
  - Dyspnoea [None]
  - Tachycardia [None]

NARRATIVE: CASE EVENT DATE: 20160621
